APPROVED DRUG PRODUCT: DEXMEDETOMIDINE HYDROCHLORIDE
Active Ingredient: DEXMEDETOMIDINE HYDROCHLORIDE
Strength: EQ 200MCG BASE/50ML (EQ 4MCG BASE/ML)
Dosage Form/Route: INJECTABLE;INJECTION
Application: A216604 | Product #001 | TE Code: AP
Applicant: AMNEAL EU LTD
Approved: May 15, 2023 | RLD: No | RS: No | Type: RX